FAERS Safety Report 15439803 (Version 1)
Quarter: 2018Q3

REPORT INFORMATION
  Report Type: Spontaneous
  Country: US (occurrence: US)
  Receive Date: 20180924
  Receipt Date: 20180924
  Transmission Date: 20181010
  Serious: Yes (Hospitalization)
  Sender: FDA-Public Use
  Company Number: None

PATIENT
  Age: 66 Year
  Sex: Male
  Weight: 83.5 kg

DRUGS (3)
  1. TAXOTERE [Suspect]
     Active Substance: DOCETAXEL
     Dates: end: 20180830
  2. CASODEX [Suspect]
     Active Substance: BICALUTAMIDE
     Dates: end: 20180830
  3. LEUPROLIDE ACETATE. [Suspect]
     Active Substance: LEUPROLIDE ACETATE
     Dates: end: 20180419

REACTIONS (3)
  - Myalgia [None]
  - Pyrexia [None]
  - Sepsis [None]

NARRATIVE: CASE EVENT DATE: 20180906
